FAERS Safety Report 4592147-4 (Version None)
Quarter: 2005Q1

REPORT INFORMATION
  Report Type: 
  Country: None (occurrence: None)
  Receive Date: 20050226
  Receipt Date: 20050210
  Transmission Date: 20050727
  Serious: Yes (Hospitalization)
  Sender: FDA-Public Use
  Company Number: JP-MERCK-0502USA01493

PATIENT
  Age: 72 Year
  Sex: Female
  Weight: 50 kg

DRUGS (8)
  1. [THERAPY UNSPECIFIED] [Suspect]
     Indication: ARTHRALGIA
     Route: 048
     Dates: start: 20041015, end: 20041208
  2. [THERAPY UNSPECIFIED] [Suspect]
     Route: 048
     Dates: start: 20041015, end: 20041208
  3. FOSAMAX [Suspect]
     Indication: OSTEOPOROSIS
     Route: 048
     Dates: start: 20041025, end: 20041208
  4. LOXONIN [Suspect]
     Indication: ARTHRALGIA
     Route: 048
     Dates: start: 20041015, end: 20041208
  5. CONIEL [Concomitant]
     Indication: HYPERTENSION
     Route: 048
     Dates: start: 20000928
  6. LIPITOR [Concomitant]
     Indication: HYPERLIPIDAEMIA
     Route: 048
     Dates: start: 20020723
  7. DASEN [Suspect]
     Indication: ARTHRALGIA
     Route: 048
     Dates: start: 20041015, end: 20041208
  8. ULGUT [Suspect]
     Indication: PROPHYLAXIS AGAINST GASTROINTESTINAL ULCER
     Route: 048
     Dates: start: 20041015, end: 20041208

REACTIONS (1)
  - LIVER DISORDER [None]
